FAERS Safety Report 5013648-0 (Version None)
Quarter: 2006Q2

REPORT INFORMATION
  Report Type: 
  Country: None (occurrence: None)
  Receive Date: 20060530
  Receipt Date: 20060522
  Transmission Date: 20061013
  Serious: Yes (Life-Threatening, Hospitalization)
  Sender: FDA-Public Use
  Company Number: JP-JPN-A200601653

PATIENT
  Age: 52 Year
  Sex: Male

DRUGS (6)
  1. PAXIL [Suspect]
     Indication: DEPRESSION
     Route: 048
     Dates: start: 20060421, end: 20060516
  2. URSO [Concomitant]
     Route: 048
  3. OMEPRAL [Concomitant]
     Route: 065
  4. CALORYL [Concomitant]
     Route: 048
  5. LIVACT [Concomitant]
     Route: 048
  6. MYSLEE [Concomitant]
     Route: 048

REACTIONS (5)
  - GRANULOCYTE COUNT DECREASED [None]
  - HEPATIC FUNCTION ABNORMAL [None]
  - HYPERTHERMIA [None]
  - IRRITABILITY [None]
  - SEROTONIN SYNDROME [None]
